FAERS Safety Report 21931951 (Version 1)
Quarter: 2023Q1

REPORT INFORMATION
  Report Type: Spontaneous
  Country: US (occurrence: None)
  Receive Date: 20230131
  Receipt Date: 20230131
  Transmission Date: 20230417
  Serious: Yes (Hospitalization)
  Sender: FDA-Public Use
  Company Number: None

PATIENT
  Sex: Female
  Weight: 116.6 kg

DRUGS (4)
  1. DEXAMETHASONE [Suspect]
     Active Substance: DEXAMETHASONE
     Dates: end: 20230109
  2. MERCAPTOPURINE [Suspect]
     Active Substance: MERCAPTOPURINE
     Dates: end: 20230123
  3. METHOTREXATE [Suspect]
     Active Substance: METHOTREXATE
     Dates: end: 20221215
  4. VINCRISTINE SULFATE [Suspect]
     Active Substance: VINCRISTINE SULFATE
     Dates: end: 20230105

REACTIONS (16)
  - Oedematous pancreatitis [None]
  - Intervertebral discitis [None]
  - Blood potassium decreased [None]
  - Blood glucose abnormal [None]
  - Red blood cell sedimentation rate increased [None]
  - Anaemia [None]
  - C-reactive protein increased [None]
  - Platelet count decreased [None]
  - Ileus [None]
  - White blood cell count decreased [None]
  - Fixed bowel loop [None]
  - Magnetic resonance imaging spinal abnormal [None]
  - Intervertebral disc disorder [None]
  - Bone marrow oedema [None]
  - Cellulitis [None]
  - Soft tissue disorder [None]

NARRATIVE: CASE EVENT DATE: 20230124
